FAERS Safety Report 12781123 (Version 2)
Quarter: 2016Q4

REPORT INFORMATION
  Report Type: Spontaneous
  Country: IT (occurrence: IT)
  Receive Date: 20160926
  Receipt Date: 20161006
  Transmission Date: 20170207
  Serious: Yes (Other)
  Sender: FDA-Public Use
  Company Number: PHHY2016IT130294

PATIENT
  Age: 64 Year

DRUGS (2)
  1. INTERFERON ALFA-2B [Suspect]
     Active Substance: INTERFERON ALFA-2B
     Indication: HEPATITIS CHRONIC ACTIVE
     Dosage: 1 DF, QW
     Route: 003
     Dates: start: 20130108, end: 20130820
  2. RIBAVIRIN. [Suspect]
     Active Substance: RIBAVIRIN
     Indication: HEPATITIS CHRONIC ACTIVE
     Dosage: 800 MG, QD
     Route: 048
     Dates: start: 20130108, end: 20130827

REACTIONS (2)
  - Stomatitis [Unknown]
  - Herpes zoster [Unknown]

NARRATIVE: CASE EVENT DATE: 20130211
